FAERS Safety Report 5296306-7 (Version None)
Quarter: 2007Q2

REPORT INFORMATION
  Report Type: 
  Country: None (occurrence: None)
  Receive Date: 20070413
  Receipt Date: 20070330
  Transmission Date: 20071010
  Serious: Yes (Hospitalization)
  Sender: FDA-Public Use
  Company Number: US-JNJFOC-20070400044

PATIENT
  Sex: Female
  Weight: 98.88 kg

DRUGS (3)
  1. ULTRAM ER [Suspect]
     Indication: OSTEOARTHRITIS
     Route: 048
  2. MELOXICAM [Suspect]
     Indication: OSTEOARTHRITIS
     Route: 048
  3. ACETAMINOPHEN [Concomitant]
     Indication: HEADACHE
     Route: 065

REACTIONS (6)
  - ANGINA PECTORIS [None]
  - CHEST PAIN [None]
  - CHILLS [None]
  - DIZZINESS [None]
  - NAUSEA [None]
  - SINUS TACHYCARDIA [None]
